FAERS Safety Report 10386301 (Version 2)
Quarter: 2015Q1

REPORT INFORMATION
  Report Type: Report from Study
  Country: US (occurrence: US)
  Receive Date: 20140815
  Receipt Date: 20150212
  Transmission Date: 20150720
  Serious: No
  Sender: FDA-Public Use
  Company Number: US-AMGEN-USASP2014061067

PATIENT
  Age: 40 Year
  Sex: Female

DRUGS (2)
  1. ENBREL [Suspect]
     Active Substance: ETANERCEPT
     Indication: PSORIATIC ARTHROPATHY
  2. ENBREL [Suspect]
     Active Substance: ETANERCEPT
     Indication: PSORIASIS
     Dosage: 50 MG, UNK
     Route: 065

REACTIONS (6)
  - Headache [Recovered/Resolved]
  - Bronchitis [Unknown]
  - Influenza [Unknown]
  - Malaise [Unknown]
  - Injection site erythema [Unknown]
  - Injection site pruritus [Recovered/Resolved]
